FAERS Safety Report 8587513-6 (Version None)
Quarter: 2012Q3

REPORT INFORMATION
  Report Type: 
  Country: None (occurrence: None)
  Receive Date: 20120810
  Receipt Date: 20120803
  Transmission Date: 20120928
  Serious: Yes (Other)
  Sender: FDA-Public Use
  Company Number: US-ALLERGAN-1210673US

PATIENT
  Age: 44 Year
  Sex: Female

DRUGS (1)
  1. LATISSE [Suspect]
     Indication: GROWTH OF EYELASHES
     Dosage: 2 GTT, QHS
     Route: 061

REACTIONS (7)
  - EYE PAIN [None]
  - ASTHENOPIA [None]
  - KERATITIS [None]
  - EYELID PTOSIS [None]
  - EYE ALLERGY [None]
  - PHOTOPHOBIA [None]
  - VISUAL IMPAIRMENT [None]
